FAERS Safety Report 23824837 (Version 1)
Quarter: 2024Q2

REPORT INFORMATION
  Report Type: Spontaneous
  Country: MX (occurrence: MX)
  Receive Date: 20240507
  Receipt Date: 20240507
  Transmission Date: 20240716
  Serious: Yes (Other)
  Sender: FDA-Public Use
  Company Number: MX-BAYER-2024A066513

PATIENT
  Age: 90 Year
  Sex: Female

DRUGS (1)
  1. XARELTO [Suspect]
     Active Substance: RIVAROXABAN
     Indication: Product used for unknown indication
     Dosage: 20 MG, 1/2 EVERY 24 HOURS
     Route: 048
     Dates: start: 202402

REACTIONS (2)
  - Pancreatic carcinoma [Unknown]
  - Wrong technique in product usage process [Unknown]
